FAERS Safety Report 7447046-7 (Version None)
Quarter: 2011Q2

REPORT INFORMATION
  Report Type: 
  Country: None (occurrence: None)
  Receive Date: 20110429
  Receipt Date: 20110419
  Transmission Date: 20111010
  Serious: Yes (Other)
  Sender: FDA-Public Use
  Company Number: RO-GENENTECH-317370

PATIENT
  Sex: Female
  Weight: 68 kg

DRUGS (2)
  1. METHOTREXATE [Concomitant]
     Indication: RHEUMATOID ARTHRITIS
     Dosage: 20 MG, 1/WEEK
     Route: 030
     Dates: start: 20030201
  2. RITUXIMAB [Suspect]
     Indication: RHEUMATOID ARTHRITIS
     Dosage: 1000 MG, Q6M
     Route: 042
     Dates: start: 20091101, end: 20101222

REACTIONS (1)
  - TUBERCULOSIS [None]
